FAERS Safety Report 6598584-0 (Version None)
Quarter: 2010Q1

REPORT INFORMATION
  Report Type: 
  Country: None (occurrence: None)
  Receive Date: 20100224
  Receipt Date: 20100222
  Transmission Date: 20100710
  Serious: No
  Sender: FDA-Public Use
  Company Number: US-BIOGENIDEC-2009BI012824

PATIENT
  Age: 49 Year
  Sex: Male

DRUGS (3)
  1. AVONEX [Suspect]
     Indication: MULTIPLE SCLEROSIS
     Route: 030
     Dates: end: 20090409
  2. AVONEX [Suspect]
     Route: 030
     Dates: start: 19990408
  3. UNKNOWN OPIOIDS (NARCOTICS) [Concomitant]

REACTIONS (2)
  - BREATHING-RELATED SLEEP DISORDER [None]
  - INTERVERTEBRAL DISC PROTRUSION [None]
